FAERS Safety Report 13000015 (Version 2)
Quarter: 2016Q4

REPORT INFORMATION
  Report Type: Spontaneous
  Country: US (occurrence: US)
  Receive Date: 20161205
  Receipt Date: 20161205
  Transmission Date: 20170207
  Serious: No
  Sender: FDA-Public Use
  Company Number: US-ASTRAZENECA-2016SF15482

PATIENT
  Sex: Male
  Weight: 86.2 kg

DRUGS (5)
  1. TUDORZA PRESSAIR [Suspect]
     Active Substance: ACLIDINIUM BROMIDE
     Indication: CHRONIC OBSTRUCTIVE PULMONARY DISEASE
     Dosage: 1-2 PUFFS IN THE MORNING AND SOMETIMES TAKES AN EVENING DOSE AS WELL
     Route: 055
     Dates: start: 201507
  2. VENTOLIN [Concomitant]
     Active Substance: ALBUTEROL SULFATE
  3. BRIO [Concomitant]
     Route: 065
     Dates: start: 201507
  4. SPIRIVA [Concomitant]
     Active Substance: TIOTROPIUM BROMIDE MONOHYDRATE
  5. SYMBICORT [Concomitant]
     Active Substance: BUDESONIDE\FORMOTEROL FUMARATE DIHYDRATE
     Indication: CHRONIC OBSTRUCTIVE PULMONARY DISEASE
     Dosage: 2 PUFFS ONCE DAILY IN THE MORNING
     Route: 055
     Dates: start: 2013, end: 201507

REACTIONS (3)
  - Visual impairment [Unknown]
  - Device failure [Unknown]
  - Circumstance or information capable of leading to medication error [Unknown]
